FAERS Safety Report 4335531-6 (Version None)
Quarter: 2004Q1

REPORT INFORMATION
  Report Type: 
  Country: None (occurrence: None)
  Receive Date: 20040330
  Receipt Date: 20040213
  Transmission Date: 20041129
  Serious: No
  Sender: FDA-Public Use
  Company Number: 27780

PATIENT
  Sex: Female

DRUGS (1)
  1. TRAVATAN [Suspect]

REACTIONS (2)
  - DEPRESSION [None]
  - FEELING JITTERY [None]
